FAERS Safety Report 8882209 (Version 2)
Quarter: 2012Q4

REPORT INFORMATION
  Report Type: 
  Country: DK (occurrence: DK)
  Receive Date: 20121102
  Receipt Date: 20121115
  Transmission Date: 20130627
  Serious: Yes (Life-Threatening, Congenital Anomaly)
  Sender: FDA-Public Use
  Company Number: DK-PFIZER INC-2012273489

PATIENT
  Sex: Female
  Weight: 1.69 kg

DRUGS (6)
  1. RAMIPRIL [Suspect]
     Indication: HYPERTENSION
     Dosage: UNK
     Route: 064
     Dates: start: 20090709, end: 20100126
  2. METFORMIN [Suspect]
     Indication: TYPE II DIABETES MELLITUS
     Dosage: UNK
     Route: 064
     Dates: start: 20090709, end: 20100126
  3. METOPROLOL [Concomitant]
     Indication: HYPERTENSION
     Dosage: UNK
     Route: 064
     Dates: start: 20090709, end: 20100126
  4. METHYLDOPA [Concomitant]
     Dosage: UNK
     Route: 064
     Dates: start: 20100126, end: 20100210
  5. NOVORAPID [Concomitant]
     Dosage: UNK
     Route: 064
     Dates: start: 20100126, end: 20100210
  6. PROTAPHANE HM [Concomitant]
     Dosage: UNK
     Route: 064
     Dates: start: 20100126, end: 20100210

REACTIONS (8)
  - Maternal exposure timing unspecified [Unknown]
  - Neonatal respiratory distress syndrome [Unknown]
  - Transposition of the great vessels [Recovered/Resolved]
  - Aortic valve stenosis [Unknown]
  - Congenital heart valve disorder [Unknown]
  - Mitral valve incompetence [Unknown]
  - Patent ductus arteriosus [Unknown]
  - Atrial septal defect [Unknown]
